FAERS Safety Report 17219319 (Version 2)
Quarter: 2020Q1

REPORT INFORMATION
  Report Type: Report from Study
  Country: US (occurrence: US)
  Receive Date: 20191231
  Receipt Date: 20200108
  Transmission Date: 20200409
  Serious: Yes (Other)
  Sender: FDA-Public Use
  Company Number: US-KYOWAKIRIN-2019BKK020675

PATIENT

DRUGS (1)
  1. CRYSVITA [Suspect]
     Active Substance: BUROSUMAB-TWZA
     Indication: PRODUCT USED FOR UNKNOWN INDICATION
     Dosage: UNKNOWN
     Route: 065

REACTIONS (8)
  - Adverse drug reaction [Unknown]
  - Hypersensitivity [Unknown]
  - Headache [Unknown]
  - Infection susceptibility increased [Unknown]
  - Migraine [Unknown]
  - Nausea [Unknown]
  - Immune-mediated adverse reaction [Unknown]
  - Injection site pain [Unknown]
